FAERS Safety Report 13295558 (Version 3)
Quarter: 2017Q2

REPORT INFORMATION
  Report Type: Spontaneous
  Country: JP (occurrence: JP)
  Receive Date: 20170303
  Receipt Date: 20170420
  Transmission Date: 20170830
  Serious: Yes (Other)
  Sender: FDA-Public Use
  Company Number: PHJP2017JP006660

PATIENT
  Age: 80 Year
  Sex: Male

DRUGS (1)
  1. LAMISIL TAB [Suspect]
     Active Substance: TERBINAFINE HYDROCHLORIDE
     Indication: TINEA INFECTION
     Dosage: UNK
     Route: 048

REACTIONS (3)
  - Eye swelling [Recovered/Resolved]
  - Ocular hyperaemia [Recovered/Resolved]
  - Eye haemorrhage [Recovered/Resolved]
